FAERS Safety Report 5008056-2 (Version None)
Quarter: 2006Q1

REPORT INFORMATION
  Report Type: 
  Country: None (occurrence: None)
  Receive Date: 20060329
  Receipt Date: 20051128
  Transmission Date: 20060701
  Serious: Yes (Life-Threatening)
  Sender: FDA-Public Use
  Company Number: 200509646

PATIENT
  Age: 26 Year
  Sex: Female

DRUGS (1)
  1. STIMATE [Suspect]
     Indication: VON WILLEBRAND'S DISEASE
     Dates: start: 20051123

REACTIONS (4)
  - COMA [None]
  - CONVULSION [None]
  - HYPONATRAEMIA [None]
  - WATER INTOXICATION [None]
